FAERS Safety Report 25363481 (Version 3)
Quarter: 2025Q3

REPORT INFORMATION
  Report Type: Spontaneous
  Country: US (occurrence: US)
  Receive Date: 20250527
  Receipt Date: 20250718
  Transmission Date: 20251020
  Serious: No
  Sender: PFIZER
  Company Number: US-PFIZER INC-202500106083

PATIENT
  Age: 15 Year
  Sex: Male
  Weight: 74.84 kg

DRUGS (1)
  1. GENOTROPIN [Suspect]
     Active Substance: SOMATROPIN
     Indication: Short stature
     Dosage: 2 MG, DAILY
     Dates: start: 2023, end: 20250520

REACTIONS (3)
  - Drug dose omission by device [Unknown]
  - Device breakage [Unknown]
  - Device defective [Unknown]

NARRATIVE: CASE EVENT DATE: 20250521
